FAERS Safety Report 4846178-7 (Version None)
Quarter: 2005Q4

REPORT INFORMATION
  Report Type: 
  Country: None (occurrence: None)
  Receive Date: 20051206
  Receipt Date: 20050721
  Transmission Date: 20060501
  Serious: Yes (Hospitalization, Disabling)
  Sender: FDA-Public Use
  Company Number: US-MERCK-0507USA03287

PATIENT
  Age: 19 Year
  Sex: Male
  Weight: 120 kg

DRUGS (2)
  1. VIOXX [Suspect]
     Indication: PAIN
     Route: 048
     Dates: start: 20011001, end: 20040305
  2. VIOXX [Suspect]
     Indication: ARTHRITIS
     Route: 048
     Dates: start: 20011001, end: 20040305

REACTIONS (7)
  - CEREBROVASCULAR ACCIDENT [None]
  - COLLAPSE OF LUNG [None]
  - EMOTIONAL DISTRESS [None]
  - LIGAMENT INJURY [None]
  - MITRAL VALVE PROLAPSE [None]
  - MOUTH CYST [None]
  - POLYTRAUMATISM [None]
